FAERS Safety Report 11580709 (Version 17)
Quarter: 2019Q3

REPORT INFORMATION
  Report Type: Report from Study
  Country: None (occurrence: CA)
  Receive Date: 20150930
  Receipt Date: 20190701
  Transmission Date: 20191004
  Serious: Yes (Disabling, Other)
  Sender: FDA-Public Use
  Company Number: CA-ABBVIE-15K-028-1471671-00

PATIENT
  Age: 43 Year
  Sex: Female

DRUGS (45)
  1. ORENCIA [Suspect]
     Active Substance: ABATACEPT
     Indication: RHEUMATOID ARTHRITIS
     Route: 042
     Dates: start: 201005, end: 201103
  2. METHOTREXATE SODIUM. [Suspect]
     Active Substance: METHOTREXATE SODIUM
     Route: 048
  3. REACTINE (CETIRIZINE HYDROCHLORIDE) [Suspect]
     Active Substance: CETIRIZINE HYDROCHLORIDE
     Indication: RHEUMATOID ARTHRITIS
     Route: 065
  4. FOLIC ACID. [Suspect]
     Active Substance: FOLIC ACID
     Route: 065
  5. ZYRTEC-D [Suspect]
     Active Substance: CETIRIZINE HYDROCHLORIDE\PSEUDOEPHEDRINE HYDROCHLORIDE
     Indication: RHEUMATOID ARTHRITIS
     Route: 065
  6. SALAZOPYRINE [Concomitant]
     Active Substance: SULFASALAZINE
     Indication: PRODUCT USED FOR UNKNOWN INDICATION
  7. REMICADE [Suspect]
     Active Substance: INFLIXIMAB
     Route: 042
  8. RITUXAN [Suspect]
     Active Substance: RITUXIMAB
     Indication: RHEUMATOID ARTHRITIS
     Route: 042
     Dates: start: 2009, end: 2010
  9. APO-SULFASALAZINE [Suspect]
     Active Substance: SULFASALAZINE
     Indication: RHEUMATOID ARTHRITIS
     Dosage: ENTERIC COATED
     Route: 048
     Dates: start: 2006, end: 2007
  10. TOPICORT MILD (HYDROCORTISONE ACETATE) [Suspect]
     Active Substance: HYDROCORTISONE ACETATE
     Route: 048
  11. FOLIC ACID. [Suspect]
     Active Substance: FOLIC ACID
     Indication: RHEUMATOID ARTHRITIS
     Route: 065
  12. FOLIC ACID. [Suspect]
     Active Substance: FOLIC ACID
     Route: 065
  13. CORTISONE [Suspect]
     Active Substance: CORTISONE
     Indication: PRODUCT USED FOR UNKNOWN INDICATION
     Route: 065
  14. HUMIRA [Suspect]
     Active Substance: ADALIMUMAB
     Indication: RHEUMATOID ARTHRITIS
     Route: 058
  15. ACTEMRA [Suspect]
     Active Substance: TOCILIZUMAB
     Indication: RHEUMATOID ARTHRITIS
     Route: 065
  16. ARAVA [Suspect]
     Active Substance: LEFLUNOMIDE
     Indication: RHEUMATOID ARTHRITIS
     Route: 048
  17. CORTISONE ACETATE. [Suspect]
     Active Substance: CORTISONE ACETATE
     Route: 061
  18. TOPICORT MILD (HYDROCORTISONE ACETATE) [Suspect]
     Active Substance: HYDROCORTISONE ACETATE
     Indication: RHEUMATOID ARTHRITIS
     Route: 048
  19. SARILUMAB [Suspect]
     Active Substance: SARILUMAB
     Indication: RHEUMATOID ARTHRITIS
     Route: 065
  20. HYDROCORTISONE ACETATE. [Suspect]
     Active Substance: HYDROCORTISONE ACETATE
     Indication: RHEUMATOID ARTHRITIS
     Route: 048
  21. PLAQUENIL [Suspect]
     Active Substance: HYDROXYCHLOROQUINE SULFATE
     Indication: RHEUMATOID ARTHRITIS
     Route: 065
     Dates: start: 2006
  22. APO PREDNISON [Suspect]
     Active Substance: PREDNISONE
     Indication: RHEUMATOID ARTHRITIS
     Route: 065
  23. PSEUDOEPHEDRINE HYDROCHLORIDE. [Suspect]
     Active Substance: PSEUDOEPHEDRINE HYDROCHLORIDE
     Indication: PRODUCT USED FOR UNKNOWN INDICATION
     Route: 065
  24. PREDNISONE. [Suspect]
     Active Substance: PREDNISONE
     Indication: RHEUMATOID ARTHRITIS
     Route: 042
  25. PARACETAMOL [Suspect]
     Active Substance: ACETAMINOPHEN
     Indication: PRODUCT USED FOR UNKNOWN INDICATION
     Route: 065
  26. CIMZIA [Suspect]
     Active Substance: CERTOLIZUMAB PEGOL
     Indication: RHEUMATOID ARTHRITIS
     Route: 058
  27. REMICADE [Suspect]
     Active Substance: INFLIXIMAB
     Indication: RHEUMATOID ARTHRITIS
     Route: 042
  28. METHOTREXATE SODIUM. [Suspect]
     Active Substance: METHOTREXATE SODIUM
     Indication: RHEUMATOID ARTHRITIS
     Route: 048
     Dates: start: 2006, end: 2016
  29. CORTISONE ACETATE. [Suspect]
     Active Substance: CORTISONE ACETATE
     Indication: RHEUMATOID ARTHRITIS
     Route: 048
  30. CORTISONE ACETATE. [Suspect]
     Active Substance: CORTISONE ACETATE
     Route: 048
  31. DESOXIMETASONE. [Suspect]
     Active Substance: DESOXIMETASONE
     Indication: RHEUMATOID ARTHRITIS
     Route: 048
  32. SULFATHALIDINE [Suspect]
     Active Substance: PHTHALYLSULFATHIAZOLE
     Indication: PRODUCT USED FOR UNKNOWN INDICATION
     Route: 065
  33. ENBREL [Suspect]
     Active Substance: ETANERCEPT
     Indication: RHEUMATOID ARTHRITIS
     Route: 058
  34. RITUXAN [Suspect]
     Active Substance: RITUXIMAB
     Route: 042
  35. FOSAMAX [Suspect]
     Active Substance: ALENDRONATE SODIUM
     Indication: RHEUMATOID ARTHRITIS
     Route: 048
  36. REMICADE [Suspect]
     Active Substance: INFLIXIMAB
     Route: 042
  37. SIMPONI [Suspect]
     Active Substance: GOLIMUMAB
     Indication: RHEUMATOID ARTHRITIS
     Route: 058
  38. APO-SULFASALAZINE [Suspect]
     Active Substance: SULFASALAZINE
     Route: 048
  39. XELJANZ [Suspect]
     Active Substance: TOFACITINIB CITRATE
     Indication: RHEUMATOID ARTHRITIS
     Route: 065
  40. FOLIC ACID. [Suspect]
     Active Substance: FOLIC ACID
     Route: 065
  41. ATASOL (ACETAMINOPHEN) [Concomitant]
     Active Substance: ACETAMINOPHEN
     Indication: PRODUCT USED FOR UNKNOWN INDICATION
  42. REMICADE [Suspect]
     Active Substance: INFLIXIMAB
     Route: 065
  43. ORENCIA [Suspect]
     Active Substance: ABATACEPT
     Route: 058
  44. DICLOFENAC SODIUM. [Suspect]
     Active Substance: DICLOFENAC SODIUM
     Indication: PRODUCT USED FOR UNKNOWN INDICATION
     Route: 065
  45. STELARA [Suspect]
     Active Substance: USTEKINUMAB
     Indication: PRODUCT USED FOR UNKNOWN INDICATION
     Route: 065

REACTIONS (41)
  - Skin wound [Recovered/Resolved]
  - Hip arthroplasty [Recovered/Resolved]
  - Helicobacter infection [Recovered/Resolved]
  - Infusion related reaction [Not Recovered/Not Resolved]
  - Adverse drug reaction [Unknown]
  - Condition aggravated [Not Recovered/Not Resolved]
  - Contraindicated product administered [Recovered/Resolved]
  - Systemic lupus erythematosus [Recovered/Resolved]
  - Therapy non-responder [Recovered/Resolved]
  - Rheumatoid arthritis [Recovered/Resolved]
  - Pericarditis [Recovered/Resolved]
  - Live birth [Unknown]
  - Anti-cyclic citrullinated peptide antibody positive [Not Recovered/Not Resolved]
  - Glossodynia [Not Recovered/Not Resolved]
  - Synovitis [Not Recovered/Not Resolved]
  - Abdominal discomfort [Recovered/Resolved]
  - Hepatic enzyme increased [Not Recovered/Not Resolved]
  - Exposure during pregnancy [Recovered/Resolved]
  - Hypersensitivity [Unknown]
  - Rheumatoid arthritis [Not Recovered/Not Resolved]
  - Hand deformity [Not Recovered/Not Resolved]
  - Joint swelling [Not Recovered/Not Resolved]
  - Rheumatoid factor positive [Not Recovered/Not Resolved]
  - Pemphigus [Recovered/Resolved]
  - Product use issue [Recovered/Resolved]
  - Blister [Recovered/Resolved]
  - Duodenal ulcer perforation [Recovered/Resolved]
  - Alopecia [Recovered/Resolved]
  - Cutaneous lupus erythematosus [Unknown]
  - Swelling [Not Recovered/Not Resolved]
  - Knee arthroplasty [Recovered/Resolved]
  - Glossodynia [Recovered/Resolved]
  - Rash [Not Recovered/Not Resolved]
  - Drug ineffective [Not Recovered/Not Resolved]
  - Injury [Not Recovered/Not Resolved]
  - Drug intolerance [Unknown]
  - Arthropathy [Recovered/Resolved]
  - Pain [Recovered/Resolved]
  - Fatigue [Not Recovered/Not Resolved]
  - Discomfort [Not Recovered/Not Resolved]
  - Treatment failure [Not Recovered/Not Resolved]

NARRATIVE: CASE EVENT DATE: 201509
